FAERS Safety Report 5106529-5 (Version None)
Quarter: 2006Q3

REPORT INFORMATION
  Report Type: 
  Country: None (occurrence: None)
  Receive Date: 20060918
  Receipt Date: 20060905
  Transmission Date: 20061208
  Serious: Yes (Hospitalization)
  Sender: FDA-Public Use
  Company Number: FR-JNJFOC-20060901063

PATIENT
  Age: 74 Year
  Sex: Female

DRUGS (9)
  1. REMICADE [Suspect]
     Indication: RHEUMATOID ARTHRITIS
     Route: 042
  2. NOVATREX [Suspect]
     Indication: DRUG USE FOR UNKNOWN INDICATION
     Route: 048
  3. CORTANCYL [Concomitant]
     Route: 065
  4. FOSAMAX [Concomitant]
     Route: 065
  5. OROCAL [Concomitant]
     Route: 065
  6. ECAZIDE [Concomitant]
     Route: 065
  7. DIFFU K [Concomitant]
     Route: 065
  8. UTEPLEX [Concomitant]
     Route: 065
  9. MOPRAL [Concomitant]
     Route: 065

REACTIONS (8)
  - ANAEMIA MACROCYTIC [None]
  - CONFUSIONAL STATE [None]
  - DEMENTIA [None]
  - DISORIENTATION [None]
  - ECCHYMOSIS [None]
  - HYPOALBUMINAEMIA [None]
  - PROTEIN TOTAL DECREASED [None]
  - TUBERCULOSIS [None]
